FAERS Safety Report 21726017 (Version 2)
Quarter: 2022Q4

REPORT INFORMATION
  Report Type: Spontaneous
  Country: US (occurrence: US)
  Receive Date: 20221214
  Receipt Date: 20221214
  Transmission Date: 20230113
  Serious: Yes (Death)
  Sender: FDA-Public Use
  Company Number: US-ALVOGEN-2022-ALVOGEN-119481

PATIENT
  Age: 53 Year
  Sex: Male

DRUGS (3)
  1. FENTANYL [Suspect]
     Active Substance: FENTANYL
     Indication: Intentional product misuse
  2. OXYCODONE [Suspect]
     Active Substance: OXYCODONE
     Indication: Intentional product misuse
  3. HEROIN [Suspect]
     Active Substance: DIAMORPHINE
     Indication: Intentional product misuse

REACTIONS (1)
  - Intentional product misuse [Fatal]
